FAERS Safety Report 24687770 (Version 1)
Quarter: 2024Q4

REPORT INFORMATION
  Report Type: Spontaneous
  Country: KR (occurrence: KR)
  Receive Date: 20241202
  Receipt Date: 20241202
  Transmission Date: 20250115
  Serious: Yes (Hospitalization)
  Sender: BRISTOL-MYERS SQUIBB COMPANY
  Company Number: KR-BRISTOL-MYERS SQUIBB COMPANY-2024-185945

PATIENT
  Age: 81 Year
  Sex: Female
  Weight: 75.6 kg

DRUGS (18)
  1. ELIQUIS [Suspect]
     Active Substance: APIXABAN
     Indication: Atrial fibrillation
     Dates: start: 20191025
  2. CEFTRIAXONE SODIUM [Concomitant]
     Active Substance: CEFTRIAXONE SODIUM
     Indication: Urinary tract infection
     Dates: start: 20200822, end: 20200828
  3. SULFASALAZINE [Concomitant]
     Active Substance: SULFASALAZINE
     Indication: Rheumatoid arthritis
     Dates: start: 20180423
  4. HYDROXYCHLOROQUINE SULFATE [Concomitant]
     Active Substance: HYDROXYCHLOROQUINE SULFATE
     Indication: Rheumatoid arthritis
     Dates: start: 20180716
  5. ALFACALCIDOL [Concomitant]
     Active Substance: ALFACALCIDOL
     Indication: Rheumatoid arthritis
     Dates: start: 20190124
  6. FOLIC ACID [Concomitant]
     Active Substance: FOLIC ACID
     Indication: Rheumatoid arthritis
     Dates: start: 20180716
  7. PANTOPRAZOLE SODIUM [Concomitant]
     Active Substance: PANTOPRAZOLE SODIUM
     Indication: Gastrointestinal disorder prophylaxis
     Dates: start: 20191031
  8. FUROSEMIDE [Concomitant]
     Active Substance: FUROSEMIDE
     Indication: Atrial fibrillation
     Dates: start: 20200210
  9. SITAGLIPTIN PHOSPHATE [Concomitant]
     Active Substance: SITAGLIPTIN PHOSPHATE
     Indication: Type 2 diabetes mellitus
     Dates: start: 20180719
  10. PREGABALIN [Concomitant]
     Active Substance: PREGABALIN
     Indication: Neuropathy peripheral
     Dates: start: 20200813, end: 20201114
  11. PREGABALIN [Concomitant]
     Active Substance: PREGABALIN
     Dates: start: 20200829, end: 20200930
  12. PREGABALIN [Concomitant]
     Active Substance: PREGABALIN
     Dates: start: 20201005, end: 20201119
  13. PREGABALIN [Concomitant]
     Active Substance: PREGABALIN
     Dates: start: 20200813, end: 20200821
  14. PREGABALIN [Concomitant]
     Active Substance: PREGABALIN
     Dates: start: 20180111, end: 20200812
  15. PREGABALIN [Concomitant]
     Active Substance: PREGABALIN
     Dates: start: 20200813, end: 20201119
  16. HYDROCORTISONE [Concomitant]
     Active Substance: HYDROCORTISONE
     Indication: Vomiting
     Dates: start: 20170721
  17. HYDROCORTISONE [Concomitant]
     Active Substance: HYDROCORTISONE
     Indication: Cushing^s syndrome
     Dates: start: 20201001, end: 20201001
  18. FEBUXOSTAT [Concomitant]
     Active Substance: FEBUXOSTAT
     Indication: Rheumatoid arthritis
     Dates: start: 20191031

REACTIONS (1)
  - Asthenia [Recovered/Resolved]

NARRATIVE: CASE EVENT DATE: 20201114
